FAERS Safety Report 6596759-8 (Version None)
Quarter: 2010Q1

REPORT INFORMATION
  Report Type: 
  Country: None (occurrence: None)
  Receive Date: 20100223
  Receipt Date: 20100219
  Transmission Date: 20100710
  Serious: Yes (Disabling)
  Sender: FDA-Public Use
  Company Number: GB-TEVA-225060ISR

PATIENT
  Age: 92 Year
  Sex: Female

DRUGS (1)
  1. ALENDRONIC ACID [Suspect]
     Indication: OSTEOPOROSIS
     Route: 048

REACTIONS (3)
  - AMNESIA [None]
  - CONFUSIONAL STATE [None]
  - HALLUCINATION, AUDITORY [None]
